FAERS Safety Report 24843896 (Version 2)
Quarter: 2025Q1

REPORT INFORMATION
  Report Type: Spontaneous
  Country: IN (occurrence: IN)
  Receive Date: 20250115
  Receipt Date: 20250305
  Transmission Date: 20250409
  Serious: Yes (Death, Hospitalization)
  Sender: ROCHE
  Company Number: IN-ROCHE-10000083123

PATIENT
  Age: 63 Year
  Sex: Male

DRUGS (1)
  1. TECENTRIQ [Suspect]
     Active Substance: ATEZOLIZUMAB
     Indication: Prostate cancer metastatic
     Route: 042
     Dates: start: 20240910

REACTIONS (4)
  - Off label use [Unknown]
  - Pneumonia [Unknown]
  - Respiratory tract infection [Unknown]
  - Pneumonia aspiration [Fatal]
